FAERS Safety Report 4552729-2 (Version None)
Quarter: 2005Q1

REPORT INFORMATION
  Report Type: 
  Country: None (occurrence: None)
  Receive Date: 20050112
  Receipt Date: 20050103
  Transmission Date: 20050727
  Serious: Yes (Death)
  Sender: FDA-Public Use
  Company Number: PERC20050002

PATIENT
  Age: 18 Year
  Sex: Male

DRUGS (2)
  1. PERCOCET [Suspect]
     Dosage: PO
     Route: 048
     Dates: end: 20040528
  2. PERCOCET [Suspect]
     Dosage: PO
     Route: 048
     Dates: end: 20040528

REACTIONS (14)
  - BLOOD BLISTER [None]
  - CARDIOMEGALY [None]
  - COMA [None]
  - CONTUSION [None]
  - CORONARY ARTERY ATHEROSCLEROSIS [None]
  - CORONARY ARTERY STENOSIS [None]
  - DRUG TOXICITY [None]
  - EXCORIATION [None]
  - HYPERKERATOSIS [None]
  - PNEUMOCONIOSIS [None]
  - PULMONARY OEDEMA [None]
  - SELF-MEDICATION [None]
  - THYMUS DISORDER [None]
  - VENTRICULAR HYPERTROPHY [None]
